FAERS Safety Report 4666014-1 (Version None)
Quarter: 2005Q2

REPORT INFORMATION
  Report Type: 
  Country: None (occurrence: None)
  Receive Date: 20050517
  Receipt Date: 20050407
  Transmission Date: 20051028
  Serious: No
  Sender: FDA-Public Use
  Company Number: S05-USA-01912-01

PATIENT
  Age: 89 Year
  Sex: Female

DRUGS (6)
  1. NAMENDA [Suspect]
     Indication: DEMENTIA ALZHEIMER'S TYPE
     Dosage: 15 MG QD; PO
     Route: 048
     Dates: start: 20050331, end: 20050406
  2. NAMENDA [Suspect]
     Indication: DEMENTIA ALZHEIMER'S TYPE
     Dosage: 10 MG BID; PO
     Route: 048
     Dates: start: 20050407
  3. NAMENDA [Suspect]
     Indication: DEMENTIA ALZHEIMER'S TYPE
     Dosage: 5 MG QD; PO
     Route: 048
     Dates: start: 20050317, end: 20050323
  4. NAMENDA [Suspect]
     Indication: DEMENTIA ALZHEIMER'S TYPE
     Dosage: 5 MG BID; PO
     Route: 048
     Dates: start: 20050324, end: 20050330
  5. HIGH BLOOD PRESSURE MEDICATIONS (NOS) [Concomitant]
  6. ARTHRITIS MEDICATIONS (NOS) [Concomitant]

REACTIONS (2)
  - ACCIDENTAL OVERDOSE [None]
  - CONFUSIONAL STATE [None]
